FAERS Safety Report 13505371 (Version 11)
Quarter: 2020Q1

REPORT INFORMATION
  Report Type: Report from Study
  Country: US (occurrence: US)
  Receive Date: 20170502
  Receipt Date: 20200319
  Transmission Date: 20200409
  Serious: Yes (Hospitalization, Other)
  Sender: FDA-Public Use
  Company Number: US-ACTELION-A-US2017-153218

PATIENT
  Age: 80 Year
  Sex: Female
  Weight: 54.42 kg

DRUGS (5)
  1. TRACLEER [Suspect]
     Active Substance: BOSENTAN
     Dosage: 62.5 MG, BID
     Route: 048
  2. SILDENAFIL CITRATE. [Concomitant]
     Active Substance: SILDENAFIL CITRATE
  3. TRACLEER [Suspect]
     Active Substance: BOSENTAN
     Dosage: 125 MG, BID
     Route: 048
  4. COUMADIN [Suspect]
     Active Substance: WARFARIN SODIUM
     Indication: PRODUCT USED FOR UNKNOWN INDICATION
     Route: 065
  5. TRACLEER [Suspect]
     Active Substance: BOSENTAN
     Indication: PULMONARY ARTERIAL HYPERTENSION
     Dosage: 62.5 UNK
     Route: 048

REACTIONS (22)
  - Cardiomegaly [Unknown]
  - Blood test abnormal [Recovered/Resolved]
  - Pain [Recovering/Resolving]
  - Arthropathy [Unknown]
  - Hepatic enzyme increased [Unknown]
  - Heart rate irregular [Unknown]
  - Asthenia [Unknown]
  - Arthralgia [Unknown]
  - Abdominal discomfort [Unknown]
  - Myalgia [Unknown]
  - Macular degeneration [Recovering/Resolving]
  - Adverse reaction [Unknown]
  - Dyspnoea [Unknown]
  - Varicose vein [Unknown]
  - Gait disturbance [Unknown]
  - Malaise [Unknown]
  - Hepatic pain [Unknown]
  - Pulmonary thrombosis [Unknown]
  - Unevaluable event [Unknown]
  - Hyperhidrosis [Unknown]
  - Fatigue [Unknown]
  - Adverse event [Unknown]

NARRATIVE: CASE EVENT DATE: 2017
